FAERS Safety Report 12566763 (Version 1)
Quarter: 2016Q3

REPORT INFORMATION
  Report Type: Spontaneous
  Country: US (occurrence: US)
  Receive Date: 20160718
  Receipt Date: 20160718
  Transmission Date: 20161109
  Serious: Yes (Hospitalization)
  Sender: FDA-Public Use
  Company Number: US-ABBVIE-15P-163-1437548-00

PATIENT
  Age: 30 Year
  Sex: Male
  Weight: 98 kg

DRUGS (5)
  1. LAMICTAL [Suspect]
     Active Substance: LAMOTRIGINE
     Indication: DEPRESSION
     Route: 065
     Dates: start: 201407
  2. TEGRETOL [Suspect]
     Active Substance: CARBAMAZEPINE
     Indication: PRODUCT USED FOR UNKNOWN INDICATION
     Route: 065
  3. HALDOL [Suspect]
     Active Substance: HALOPERIDOL
     Indication: PRODUCT USED FOR UNKNOWN INDICATION
     Route: 065
  4. DEPAKOTE [Suspect]
     Active Substance: DIVALPROEX SODIUM
     Indication: PRODUCT USED FOR UNKNOWN INDICATION
     Route: 065
     Dates: start: 201407
  5. TRILEPTAL [Suspect]
     Active Substance: OXCARBAZEPINE
     Indication: PRODUCT USED FOR UNKNOWN INDICATION
     Route: 065

REACTIONS (12)
  - Psychomotor hyperactivity [Unknown]
  - Coordination abnormal [Unknown]
  - Drug ineffective [Unknown]
  - Lethargy [Unknown]
  - Blood sodium decreased [Unknown]
  - Restlessness [Unknown]
  - Asthenia [Unknown]
  - Overdose [Unknown]
  - Suicidal ideation [Unknown]
  - Disability [Unknown]
  - Lipids abnormal [Unknown]
  - Agitation [Unknown]

NARRATIVE: CASE EVENT DATE: 20150716
